FAERS Safety Report 8487189-2 (Version None)
Quarter: 2012Q3

REPORT INFORMATION
  Report Type: 
  Country: None (occurrence: None)
  Receive Date: 20120705
  Receipt Date: 20120627
  Transmission Date: 20120928
  Serious: Yes (Other)
  Sender: FDA-Public Use
  Company Number: SE-ROCHE-1083306

PATIENT
  Age: 15 Year
  Sex: Male

DRUGS (3)
  1. SYMBICORT [Concomitant]
     Route: 065
  2. XOLAIR [Suspect]
     Indication: ASTHMA
     Route: 065
     Dates: start: 20120213
  3. XOLAIR [Suspect]
     Route: 065
     Dates: start: 20120321, end: 20120321

REACTIONS (3)
  - SUICIDAL IDEATION [None]
  - FATIGUE [None]
  - BLOOD IMMUNOGLOBULIN E DECREASED [None]
